FAERS Safety Report 4503570-8 (Version None)
Quarter: 2004Q4

REPORT INFORMATION
  Report Type: 
  Country: None (occurrence: None)
  Receive Date: 20041112
  Receipt Date: 20041104
  Transmission Date: 20050328
  Serious: Yes (Life-Threatening)
  Sender: FDA-Public Use
  Company Number: 2004242918CA

PATIENT
  Age: 46 Year
  Sex: Male

DRUGS (3)
  1. CAMPTOSAR [Suspect]
     Indication: HEPATIC NEOPLASM MALIGNANT
     Dosage: 180 MG/M2, EVERY 2 WEEKS, D1, 2, IV
     Route: 042
     Dates: start: 20040713, end: 20040928
  2. FLUOROURACIL [Suspect]
     Indication: HEPATIC NEOPLASM MALIGNANT
     Dosage: 1000 MG/M2, EVERY 2 WEEKS, D1, 2, IV
     Route: 042
     Dates: start: 20040713, end: 20040930
  3. COMPARATOR-LEUCOVORIN (CALCIUM FOLINATE) INJECTION [Suspect]
     Indication: HEPATIC NEOPLASM MALIGNANT
     Dosage: 200 MG/M2, EVERY 2 WEEKS, D1,2, IV
     Route: 042
     Dates: start: 20040713, end: 20040929

REACTIONS (2)
  - HEPATIC FAILURE [None]
  - POST PROCEDURAL COMPLICATION [None]
